FAERS Safety Report 24864600 (Version 1)
Quarter: 2025Q1

REPORT INFORMATION
  Report Type: Spontaneous
  Country: AT (occurrence: AT)
  Receive Date: 20250120
  Receipt Date: 20250120
  Transmission Date: 20250408
  Serious: Yes (Death, Hospitalization)
  Sender: ACCORD
  Company Number: AT-EMA-DD-20241210-7482699-135429

PATIENT
  Age: 75 Year
  Sex: Male

DRUGS (13)
  1. BORTEZOMIB [Suspect]
     Active Substance: BORTEZOMIB
     Indication: Encephalomyelitis
  2. DEXMEDETOMIDINE HYDROCHLORIDE [Suspect]
     Active Substance: DEXMEDETOMIDINE HYDROCHLORIDE
     Indication: Sedation
  3. METHOTREXATE [Suspect]
     Active Substance: METHOTREXATE
     Indication: Encephalomyelitis
  4. BACLOFEN [Suspect]
     Active Substance: BACLOFEN
     Indication: Encephalomyelitis
  5. CYCLOPHOSPHAMIDE [Suspect]
     Active Substance: CYCLOPHOSPHAMIDE
     Indication: Encephalomyelitis
  6. DIAZEPAM [Suspect]
     Active Substance: DIAZEPAM
     Indication: Sedation
  7. DRONABINOL [Suspect]
     Active Substance: DRONABINOL
     Indication: Encephalomyelitis
  8. ISOFLURANE [Suspect]
     Active Substance: ISOFLURANE
     Indication: Sedation
  9. METHYLPREDNISOLONE [Suspect]
     Active Substance: METHYLPREDNISOLONE
     Indication: Encephalomyelitis
  10. PROPOFOL [Suspect]
     Active Substance: PROPOFOL
     Indication: Sedation
  11. SUFENTANIL [Suspect]
     Active Substance: SUFENTANIL
     Indication: Sedation
  12. TIAPRIDE [Suspect]
     Active Substance: TIAPRIDE
     Indication: Encephalomyelitis
  13. TRYPTOPHAN [Concomitant]
     Active Substance: TRYPTOPHAN
     Indication: Immunoadsorption therapy

REACTIONS (4)
  - Autonomic nervous system imbalance [Fatal]
  - Rebound effect [Fatal]
  - Drug ineffective [Fatal]
  - Agitation [Fatal]
